FAERS Safety Report 15507466 (Version 5)
Quarter: 2019Q4

REPORT INFORMATION
  Report Type: Report from Study
  Country: JP (occurrence: JP)
  Receive Date: 20181016
  Receipt Date: 20191127
  Transmission Date: 20200122
  Serious: Yes (Hospitalization, Other)
  Sender: FDA-Public Use
  Company Number: JP-PFIZER INC-2018409318

PATIENT
  Age: 82 Year
  Sex: Male
  Weight: 50.4 kg

DRUGS (20)
  1. ENALAPRIL MALEATE. [Suspect]
     Active Substance: ENALAPRIL MALEATE
     Indication: CARDIAC FAILURE
     Dosage: UNK
     Route: 048
     Dates: start: 20180320, end: 20180429
  2. FLUITRAN [Suspect]
     Active Substance: TRICHLORMETHIAZIDE
     Indication: OEDEMA DUE TO CARDIAC DISEASE
     Dosage: UNK
     Route: 048
     Dates: start: 20180413
  3. SODIUM PICOSULFATE [Concomitant]
     Active Substance: SODIUM PICOSULFATE
     Indication: CONSTIPATION
     Dosage: UNK
     Route: 048
     Dates: start: 20180413
  4. TOPILORIC [Concomitant]
     Active Substance: TOPIROXOSTAT
     Indication: HYPERURICAEMIA
     Dosage: UNK
     Route: 048
     Dates: start: 20180419, end: 20180818
  5. MAINTATE [Suspect]
     Active Substance: BISOPROLOL FUMARATE
     Indication: CARDIAC FAILURE
     Dosage: UNK
     Route: 048
     Dates: start: 20180404, end: 20180609
  6. NEXIUM [Concomitant]
     Active Substance: ESOMEPRAZOLE MAGNESIUM
     Indication: GASTRIC ULCER
     Dosage: UNK
     Route: 048
  7. WARFARIN [Concomitant]
     Active Substance: WARFARIN
     Dosage: UNK
     Route: 048
     Dates: start: 20180910, end: 20181001
  8. MIYA-BM [Concomitant]
     Active Substance: CLOSTRIDIUM BUTYRICUM SPORES STRAIN M-55
     Indication: GASTROINTESTINAL DISORDER
     Dosage: UNK
     Route: 048
     Dates: start: 20180413
  9. SELARA [Suspect]
     Active Substance: EPLERENONE
     Dosage: 50 MG, 1X/DAY
     Dates: start: 20180601, end: 20181001
  10. SAMSCA [Suspect]
     Active Substance: TOLVAPTAN
     Indication: FLUID RETENTION
     Dosage: UNK
     Route: 048
     Dates: start: 20180221
  11. KALGUT [Concomitant]
     Active Substance: DENOPAMINE
     Indication: CARDIAC FAILURE
     Dosage: UNK
     Route: 048
     Dates: start: 20180327
  12. AMIODARONE HYDROCHLORIDE TE [Concomitant]
     Indication: VENTRICULAR FIBRILLATION
     Dosage: UNK
     Route: 048
     Dates: start: 20180222
  13. SELARA [Suspect]
     Active Substance: EPLERENONE
     Indication: CARDIAC FAILURE CHRONIC
     Dosage: 25 MG, 1X/DAY
     Dates: start: 20180412, end: 20180531
  14. URIADEC [Concomitant]
     Active Substance: TOPIROXOSTAT
     Indication: HYPERURICAEMIA
     Dosage: UNK
     Route: 048
     Dates: start: 20170727
  15. LUPRAC [Suspect]
     Active Substance: TORSEMIDE
     Indication: OEDEMA DUE TO CARDIAC DISEASE
     Dosage: UNK
     Route: 048
     Dates: start: 20180430
  16. PLETAAL [Concomitant]
     Active Substance: CILOSTAZOL
     Indication: MYOCARDIAL ISCHAEMIA
     Dosage: UNK
     Route: 048
     Dates: start: 20180716, end: 20180721
  17. WARFARIN [Concomitant]
     Active Substance: WARFARIN
     Indication: ATRIAL FIBRILLATION
     Dosage: UNK
     Route: 048
     Dates: start: 20180702, end: 20180721
  18. PIMOBENDAN [Concomitant]
     Active Substance: PIMOBENDAN
     Indication: CARDIAC FAILURE
     Dosage: UNK
     Route: 048
     Dates: start: 20180403
  19. RUEFRIEN [Concomitant]
     Active Substance: GLUTAMINE\SODIUM GUALENATE
     Indication: GASTRIC ULCER
     Dosage: UNK
     Route: 048
     Dates: start: 20180413
  20. OLOPATADINE. [Concomitant]
     Active Substance: OLOPATADINE
     Indication: HYPERSENSITIVITY
     Dosage: UNK
     Route: 048
     Dates: start: 20180521

REACTIONS (2)
  - Fall [Recovered/Resolved with Sequelae]
  - Spinal cord injury [Recovered/Resolved with Sequelae]

NARRATIVE: CASE EVENT DATE: 20180720
